FAERS Safety Report 22683756 (Version 5)
Quarter: 2024Q1

REPORT INFORMATION
  Report Type: Report from Study
  Country: KR (occurrence: KR)
  Receive Date: 20230708
  Receipt Date: 20240220
  Transmission Date: 20240410
  Serious: Yes (Other)
  Sender: FDA-Public Use
  Company Number: KR-002147023-NVSC2023KR152483

PATIENT
  Sex: Female
  Weight: 46.5 kg

DRUGS (23)
  1. RYDAPT [Suspect]
     Active Substance: MIDOSTAURIN
     Indication: Acute myeloid leukaemia
     Dosage: 50 MG, BID
     Route: 048
     Dates: start: 20230505, end: 20230518
  2. RYDAPT [Suspect]
     Active Substance: MIDOSTAURIN
     Dosage: 50 MG, BID
     Route: 048
     Dates: start: 20230702, end: 20230715
  3. RYDAPT [Suspect]
     Active Substance: MIDOSTAURIN
     Dosage: 50 MG, BID
     Route: 048
     Dates: start: 20230828, end: 20230910
  4. RYDAPT [Suspect]
     Active Substance: MIDOSTAURIN
     Dosage: 50 MG, BID
     Route: 048
     Dates: start: 20231029, end: 20231106
  5. CITOPCIN [Concomitant]
     Indication: Prophylaxis
     Dosage: 1000 MG
     Route: 048
     Dates: start: 20230501, end: 20230508
  6. DIFLUCAN [Concomitant]
     Active Substance: FLUCONAZOLE
     Indication: Prophylaxis
     Dosage: 100 MG
     Route: 048
     Dates: start: 20230504, end: 20230608
  7. ACLOVA [Concomitant]
     Indication: Prophylaxis
     Dosage: 800 MG
     Route: 048
     Dates: start: 20230509, end: 20230715
  8. SULFAMETHOXAZOLE\TRIMETHOPRIM [Concomitant]
     Active Substance: SULFAMETHOXAZOLE\TRIMETHOPRIM
     Indication: Prophylaxis
     Dosage: 1 DOSAGE FORM
     Route: 048
     Dates: start: 20230509, end: 20230621
  9. MAXIPIME [Concomitant]
     Active Substance: CEFEPIME HYDROCHLORIDE
     Indication: Prophylaxis
     Dosage: 6 G
     Route: 042
     Dates: start: 20230513, end: 20230527
  10. DAUNORUBICIN HYDROCHLORIDE [Concomitant]
     Active Substance: DAUNORUBICIN HYDROCHLORIDE
     Indication: Acute myeloid leukaemia
     Dosage: 130 MG
     Route: 042
     Dates: start: 20230428, end: 20230430
  11. URSODIOL [Concomitant]
     Active Substance: URSODIOL
     Indication: Alanine aminotransferase increased
     Dosage: 600 MG, QD
     Route: 048
     Dates: start: 20230831, end: 20230926
  12. CEFTAZIDIME [Concomitant]
     Active Substance: CEFTAZIDIME
     Indication: Prophylaxis
     Dosage: 6 G
     Route: 042
     Dates: start: 20230824, end: 20230829
  13. CEFTAZIDIME [Concomitant]
     Active Substance: CEFTAZIDIME
     Indication: Bacteraemia
     Dosage: 6 G
     Route: 042
     Dates: start: 20230908, end: 20230909
  14. CEFEPIME [Concomitant]
     Active Substance: CEFEPIME HYDROCHLORIDE
     Indication: Bacteraemia
     Dosage: 6 G
     Route: 042
     Dates: start: 20230909, end: 20230919
  15. TEICOPLANIN [Concomitant]
     Active Substance: TEICOPLANIN
     Indication: Prophylaxis
     Dosage: 561 MG
     Route: 042
     Dates: start: 20230911, end: 20230914
  16. CEFAZOLIN [Concomitant]
     Active Substance: CEFAZOLIN
     Indication: Prophylaxis
     Dosage: 6 G
     Route: 042
     Dates: start: 20230824, end: 20230829
  17. CYTARABINE [Concomitant]
     Active Substance: CYTARABINE
     Indication: Acute myeloid leukaemia
     Dosage: 280 MG
     Route: 042
     Dates: start: 20230428, end: 20230504
  18. CYTARABINE [Concomitant]
     Active Substance: CYTARABINE
     Dosage: 8600 MG
     Route: 042
     Dates: start: 20230625, end: 20230625
  19. CYTARABINE [Concomitant]
     Active Substance: CYTARABINE
     Dosage: 8600 MG
     Route: 042
     Dates: start: 20230627, end: 20230627
  20. CYTARABINE [Concomitant]
     Active Substance: CYTARABINE
     Dosage: 8600 MG
     Route: 042
     Dates: start: 20230629, end: 20230629
  21. CYTARABINE [Concomitant]
     Active Substance: CYTARABINE
     Dosage: 8400 MG
     Route: 042
     Dates: start: 20230821, end: 20230821
  22. CYTARABINE [Concomitant]
     Active Substance: CYTARABINE
     Dosage: 8400 MG
     Route: 042
     Dates: start: 20230823, end: 20230823
  23. CYTARABINE [Concomitant]
     Active Substance: CYTARABINE
     Dosage: 8400 MG
     Route: 042
     Dates: start: 20230825, end: 20230825

REACTIONS (1)
  - Bacteraemia [Recovered/Resolved]

NARRATIVE: CASE EVENT DATE: 20230509
